FAERS Safety Report 20738004 (Version 19)
Quarter: 2024Q1

REPORT INFORMATION
  Report Type: Spontaneous
  Country: CA (occurrence: CA)
  Receive Date: 20220422
  Receipt Date: 20240208
  Transmission Date: 20240410
  Serious: Yes (Hospitalization, Other)
  Sender: FDA-Public Use
  Company Number: CA-CELLTRION INC.-2021CA018650

PATIENT

DRUGS (18)
  1. INFLECTRA [Suspect]
     Active Substance: INFLIXIMAB-DYYB
     Indication: Colitis ulcerative
     Dosage: 500 MG EVERY 8 WEEKS
     Route: 042
     Dates: start: 20191101, end: 20220805
  2. INFLECTRA [Suspect]
     Active Substance: INFLIXIMAB-DYYB
     Dosage: 500 MG EVERY 8 WEEKS
     Route: 042
     Dates: start: 20220218
  3. INFLECTRA [Suspect]
     Active Substance: INFLIXIMAB-DYYB
     Dosage: 500 MG EVERY 8 WEEKS
     Route: 042
     Dates: start: 20220414
  4. INFLECTRA [Suspect]
     Active Substance: INFLIXIMAB-DYYB
     Dosage: 500 MG EVERY 8 WEEKS
     Route: 042
     Dates: start: 20220414
  5. INFLECTRA [Suspect]
     Active Substance: INFLIXIMAB-DYYB
     Dosage: 500 MG EVERY 8 WEEKS
     Route: 042
     Dates: start: 20220805
  6. INFLECTRA [Suspect]
     Active Substance: INFLIXIMAB-DYYB
     Dosage: 900 MG, EVERY 8 WEEKS
     Route: 042
     Dates: start: 20220929
  7. INFLECTRA [Suspect]
     Active Substance: INFLIXIMAB-DYYB
     Dosage: 900 MG, EVERY 8 WEEKS
     Route: 042
     Dates: start: 20221125
  8. INFLECTRA [Suspect]
     Active Substance: INFLIXIMAB-DYYB
     Dosage: 500 MG, EVERY 8 WEEKS
     Route: 042
     Dates: start: 20230120
  9. INFLECTRA [Suspect]
     Active Substance: INFLIXIMAB-DYYB
     Dosage: 500 MG, EVERY 8 WEEKS
     Route: 042
     Dates: start: 20230901
  10. INFLECTRA [Suspect]
     Active Substance: INFLIXIMAB-DYYB
     Dosage: 500 MG, AFTER 7 WEEKS AND 6 DAYS (PRESCRIBED FREQUENCY EVERY 8 WEEKS)
     Route: 042
     Dates: start: 20231026
  11. MODERNA COVID-19 VACCINE [Concomitant]
     Active Substance: ELASOMERAN
     Indication: Immunisation
     Dosage: DOSE 4, SINGLE
     Dates: start: 20220408, end: 20220408
  12. GABAPENTIN [Concomitant]
     Active Substance: GABAPENTIN
     Dosage: 100 MG, FOR ABOUT 4 WEEKS
     Route: 065
     Dates: start: 2022
  13. GABAPENTIN [Concomitant]
     Active Substance: GABAPENTIN
     Dosage: 300 MG, 1X/DAY
     Route: 065
     Dates: start: 2022
  14. GABAPENTIN [Concomitant]
     Active Substance: GABAPENTIN
     Dosage: 400 MG, 1X/DAY
     Route: 065
     Dates: start: 2022
  15. GABAPENTIN [Concomitant]
     Active Substance: GABAPENTIN
     Dosage: 300 MG, 1X/DAY
     Route: 065
     Dates: start: 2022
  16. INFLUENZA VIRUS VACCINE [Concomitant]
     Active Substance: INFLUENZA VIRUS VACCINE
     Indication: Immunisation
     Dosage: UNK, SINGLE
     Dates: start: 20221014, end: 20221014
  17. MESALAMINE [Concomitant]
     Active Substance: MESALAMINE
     Dosage: 1 DF DOSAGE INFO NOT AVAILABLE
     Route: 065
  18. PFIZER-BIONTECH COVID-19 VACCINE [Concomitant]
     Active Substance: TOZINAMERAN
     Indication: COVID-19 immunisation
     Dosage: DOSE 5, SINGLE (PFIZER BIVALENT)
     Dates: start: 20221017, end: 20221017

REACTIONS (22)
  - Escherichia bacteraemia [Unknown]
  - Sepsis [Recovered/Resolved]
  - Spondylitis [Not Recovered/Not Resolved]
  - Drug ineffective [Unknown]
  - Pain in extremity [Unknown]
  - COVID-19 [Not Recovered/Not Resolved]
  - Localised infection [Unknown]
  - Chest pain [Unknown]
  - Oesophageal spasm [Unknown]
  - Fall [Unknown]
  - Limb injury [Unknown]
  - Joint injury [Unknown]
  - Back pain [Unknown]
  - Pain [Unknown]
  - Arthritis [Unknown]
  - Tremor [Unknown]
  - Fungal foot infection [Unknown]
  - Condition aggravated [Not Recovered/Not Resolved]
  - Muscle twitching [Recovered/Resolved]
  - Off label use [Unknown]
  - Off label use [Unknown]
  - Intentional product use issue [Unknown]

NARRATIVE: CASE EVENT DATE: 20210101
